FAERS Safety Report 23742471 (Version 3)
Quarter: 2024Q2

REPORT INFORMATION
  Report Type: Spontaneous
  Country: CO (occurrence: CO)
  Receive Date: 20240415
  Receipt Date: 20240626
  Transmission Date: 20240715
  Serious: Yes (Hospitalization, Other)
  Sender: FDA-Public Use
  Company Number: CO-009507513-2404COL007174

PATIENT
  Age: 90 Year
  Sex: Female

DRUGS (1)
  1. KEYTRUDA [Suspect]
     Active Substance: PEMBROLIZUMAB
     Indication: Adenocarcinoma of colon
     Dosage: 200 MILLIGRAM
     Dates: start: 20240306, end: 20240306

REACTIONS (9)
  - Asthenia [Unknown]
  - Tremor [Unknown]
  - Nausea [Unknown]
  - Disorientation [Unknown]
  - Tachycardia [Unknown]
  - Pyrexia [Unknown]
  - Adrenal insufficiency [Unknown]
  - Shock [Recovered/Resolved]
  - Infection [Unknown]

NARRATIVE: CASE EVENT DATE: 20240301
